FAERS Safety Report 11778845 (Version 4)
Quarter: 2017Q1

REPORT INFORMATION
  Report Type: Report from Study
  Country: None (occurrence: CA)
  Receive Date: 20151125
  Receipt Date: 20170217
  Transmission Date: 20170428
  Serious: Yes (Hospitalization)
  Sender: FDA-Public Use
  Company Number: CA-ABBVIE-15P-028-1503398-00

PATIENT
  Age: 50 Year
  Sex: Female
  Weight: 46.31 kg

DRUGS (10)
  1. EXTRA STRENGTH ADVIL [Concomitant]
     Indication: CRANIOCEREBRAL INJURY
     Dates: start: 20141218
  2. TYLENOL EXTRA STRENGTH [Concomitant]
     Active Substance: ACETAMINOPHEN
     Indication: PAIN IN JAW
  3. HUMIRA [Suspect]
     Active Substance: ADALIMUMAB
     Route: 058
     Dates: start: 20161214
  4. TYLENOL EXTRA STRENGTH [Concomitant]
     Active Substance: ACETAMINOPHEN
     Indication: CRANIOCEREBRAL INJURY
     Dates: start: 20141218
  5. COAL TAR 10% AND SALICYLIC ACID 3% [Concomitant]
     Indication: PSORIASIS
     Dosage: QD, AS NEEDED
     Dates: start: 20130511
  6. HUMIRA [Suspect]
     Active Substance: ADALIMUMAB
     Indication: PSORIASIS
     Route: 058
     Dates: start: 20110211, end: 20151010
  7. EXTRA STRENGTH ADVIL [Concomitant]
     Indication: PAIN IN JAW
  8. TEVA-BETAHISTINE [Concomitant]
     Indication: VERTIGO
     Dates: start: 20150205
  9. CLOBETASOL OINTMENT AND SALICYLIC ACID 3% [Concomitant]
     Indication: PSORIASIS
     Dosage: QD, AS NEEDED
     Dates: start: 20150829
  10. CLOBETASOL/10% LIQUOR CARBONIS DETERGENS/3% SALICYLIC ACID IN VASELINE [Concomitant]
     Indication: PSORIASIS
     Dosage: 1 APPLICATION
     Dates: start: 20130312

REACTIONS (2)
  - Gastritis [Recovered/Resolved]
  - Oesophagitis [Recovered/Resolved]

NARRATIVE: CASE EVENT DATE: 20151029
